FAERS Safety Report 8388349-1 (Version None)
Quarter: 2012Q2

REPORT INFORMATION
  Report Type: 
  Country: None (occurrence: None)
  Receive Date: 20120525
  Receipt Date: 20120522
  Transmission Date: 20120825
  Serious: Yes (Hospitalization, Other)
  Sender: FDA-Public Use
  Company Number: US-ASTRAZENECA-2011SE32254

PATIENT
  Age: 54 Year
  Sex: Female
  Weight: 122.3 kg

DRUGS (41)
  1. NEXIUM [Suspect]
     Indication: DYSPEPSIA
     Route: 048
     Dates: start: 20080307
  2. PEPCID [Concomitant]
  3. MIRAPEX [Concomitant]
     Dates: start: 20090223
  4. CELEBREX [Concomitant]
     Dates: start: 20090605
  5. NEXIUM [Suspect]
     Indication: GASTROOESOPHAGEAL REFLUX DISEASE
     Route: 048
     Dates: start: 20080307
  6. NEXIUM [Suspect]
     Route: 048
     Dates: start: 20090223
  7. NEXIUM [Suspect]
     Route: 048
     Dates: start: 20100322
  8. ASPIRIN [Concomitant]
     Dates: start: 20090223
  9. ALPRAZOLAM [Concomitant]
     Route: 048
     Dates: start: 20100317
  10. MIRAPEX [Concomitant]
     Dates: start: 20101026
  11. HYDROCODONE BITARTRATE [Concomitant]
     Dates: start: 20100315
  12. NEXIUM [Suspect]
     Route: 048
     Dates: start: 20090605
  13. PROZAC [Concomitant]
     Dates: start: 20090223
  14. LOVAZA [Concomitant]
     Dates: start: 20101026
  15. LOVAZA [Concomitant]
     Dates: start: 20090223
  16. NEXIUM [Suspect]
     Route: 048
     Dates: start: 20090801, end: 20110401
  17. NEXIUM [Suspect]
     Route: 048
     Dates: start: 20090801, end: 20110401
  18. NEXIUM [Suspect]
     Route: 048
     Dates: start: 20100322
  19. TOPROL-XL [Concomitant]
     Dates: start: 20090223
  20. PROZAC [Concomitant]
     Indication: EMOTIONAL DISTRESS
     Dates: start: 20090506
  21. PROZAC [Concomitant]
     Dates: start: 20100315
  22. ASPIRIN [Concomitant]
  23. BONIVA [Concomitant]
     Indication: OSTEOPOROSIS
     Dates: start: 20101026
  24. MAXZIDE [Concomitant]
     Dosage: 75 MG 1/2 TAB DAILY
     Dates: start: 20100322
  25. LOVAZA [Concomitant]
     Dates: start: 20100315
  26. GARLIC [Concomitant]
     Dosage: ONE A DAY
     Dates: start: 20090506
  27. CELEBREX [Concomitant]
     Dates: start: 20090223
  28. ROLAIDS [Concomitant]
  29. MIRAPEX [Concomitant]
     Dates: start: 20100315
  30. NEXIUM [Suspect]
     Route: 048
     Dates: start: 20090605
  31. NEXIUM [Suspect]
     Route: 048
     Dates: start: 20100507
  32. NEXIUM [Suspect]
     Route: 048
     Dates: start: 20100507
  33. TOPROL-XL [Concomitant]
     Indication: HYPERTENSION
  34. BONIVA [Concomitant]
     Dates: start: 20090223
  35. MAXZIDE [Concomitant]
     Dates: start: 20090605
  36. HYDROCODONE BITARTRATE [Concomitant]
     Dates: start: 20101026
  37. NEXIUM [Suspect]
     Route: 048
     Dates: start: 20090223
  38. TOPROL-XL [Concomitant]
     Dates: start: 20100315
  39. CLONAZEPAM [Concomitant]
     Indication: EMOTIONAL DISTRESS
  40. MAXZIDE [Concomitant]
     Dates: start: 20090223
  41. HYDROCODONE BITARTRATE [Concomitant]
     Dosage: 5 MG/500 MG
     Dates: start: 20090223

REACTIONS (11)
  - JOINT DISLOCATION [None]
  - HAND FRACTURE [None]
  - BONE FORMATION DECREASED [None]
  - OSTEOPOROSIS [None]
  - INTERVERTEBRAL DISC PROTRUSION [None]
  - INTERVERTEBRAL DISC DEGENERATION [None]
  - NECK PAIN [None]
  - BONE DISORDER [None]
  - ARTHRITIS [None]
  - OSTEOARTHRITIS [None]
  - SPINAL OSTEOARTHRITIS [None]
